FAERS Safety Report 6964866-3 (Version None)
Quarter: 2010Q3

REPORT INFORMATION
  Report Type: 
  Country: None (occurrence: None)
  Receive Date: 20100903
  Receipt Date: 20100826
  Transmission Date: 20110219
  Serious: Yes (Hospitalization)
  Sender: FDA-Public Use
  Company Number: GB-US-EMD SERONO, INC.-220025J10GBR

PATIENT
  Sex: Female

DRUGS (7)
  1. SAIZEN [Suspect]
     Indication: PRODUCT USED FOR UNKNOWN INDICATION
     Dates: start: 20090323, end: 20091201
  2. SAIZEN [Suspect]
     Dates: start: 20091203
  3. SEPTIM [Concomitant]
     Indication: PROPHYLAXIS
     Route: 048
  4. RANITIDINE [Concomitant]
     Indication: PROPHYLAXIS
     Route: 048
  5. MMF [Concomitant]
     Indication: HAEMOLYSIS
     Route: 048
  6. VALGANCICLOVIR [Concomitant]
  7. PREDNISOLONE [Concomitant]
     Indication: HAEMOLYSIS
     Route: 048

REACTIONS (9)
  - BLOOD POTASSIUM DECREASED [None]
  - CYTOMEGALOVIRUS VIRAEMIA [None]
  - EAR PAIN [None]
  - ESCHERICHIA URINARY TRACT INFECTION [None]
  - FACIAL PAIN [None]
  - HAEMOLYSIS [None]
  - HEADACHE [None]
  - HYPOTENSION [None]
  - TOOTHACHE [None]
